FAERS Safety Report 12391717 (Version 2)
Quarter: 2016Q2

REPORT INFORMATION
  Report Type: Spontaneous
  Country: US (occurrence: US)
  Receive Date: 20160522
  Receipt Date: 20160607
  Transmission Date: 20160815
  Serious: No
  Sender: FDA-Public Use
  Company Number: US-TEVA-657173ACC

PATIENT
  Sex: Female

DRUGS (1)
  1. PARAGARD T 380A [Suspect]
     Active Substance: COPPER
     Indication: CONTRACEPTION
     Dates: start: 201507

REACTIONS (3)
  - Vaginal infection [Unknown]
  - Menstruation delayed [Not Recovered/Not Resolved]
  - Vaginal discharge [Unknown]

NARRATIVE: CASE EVENT DATE: 20160419
